FAERS Safety Report 12625088 (Version 1)
Quarter: 2016Q3

REPORT INFORMATION
  Report Type: Spontaneous
  Country: US (occurrence: None)
  Receive Date: 20160804
  Receipt Date: 20160804
  Transmission Date: 20161109
  Serious: Yes (Other)
  Sender: FDA-Public Use
  Company Number: None

PATIENT
  Age: 28 Year
  Sex: Male

DRUGS (2)
  1. CREST WHITENING SYSTEM STRIPS WHITESTRIP 3 D WHITE LUXE [Suspect]
     Active Substance: HYDROGEN PEROXIDE
     Indication: DENTAL CARE
     Dosage: 2 STRIP FOR ONLY 30 MINUTES 1/DAY INTRAORAL
     Dates: start: 20160616, end: 20160616
  2. CREST WHITENING SYSTEM STRIPS WHITESTRIP 3 D WHITE LUXE [Suspect]
     Active Substance: HYDROGEN PEROXIDE
     Indication: DENTAL CARE
     Dosage: 2 STRIP FOR AN HOUR AND A HALF OR 2 HOURS, 1/DAY
     Dates: start: 20160615, end: 20160615

REACTIONS (5)
  - Tooth discolouration [None]
  - Mouth swelling [None]
  - Incorrect drug administration duration [None]
  - Swollen tongue [None]
  - Dyspnoea [None]

NARRATIVE: CASE EVENT DATE: 20160616
